FAERS Safety Report 8643139 (Version 2)
Quarter: 2013Q1

REPORT INFORMATION
  Report Type: Spontaneous
  Country: US (occurrence: US)
  Receive Date: 20120629
  Receipt Date: 20130225
  Transmission Date: 20140127
  Serious: Yes (Death, Congenital Anomaly, Other)
  Sender: FDA-Public Use
  Company Number: US-PFIZER INC-2012153870

PATIENT
  Sex: Male

DRUGS (1)
  1. ZOLOFT [Suspect]
     Dosage: UNK
     Route: 064
     Dates: start: 200502, end: 200510

REACTIONS (14)
  - Maternal exposure timing unspecified [Fatal]
  - Bronchopulmonary dysplasia [Fatal]
  - Respiratory failure [Fatal]
  - Pulmonary vein stenosis [Fatal]
  - Congenital pulmonary hypertension [Fatal]
  - Atrial septal defect [Fatal]
  - Congenital anomaly [Fatal]
  - Patent ductus arteriosus [Unknown]
  - Ventricular septal defect [Unknown]
  - Hypospadias [Unknown]
  - Neonatal respiratory distress syndrome [Unknown]
  - Congenital hand malformation [Unknown]
  - Syndactyly [Unknown]
  - Hydrocephalus [Unknown]
